FAERS Safety Report 20976226 (Version 2)
Quarter: 2023Q2

REPORT INFORMATION
  Report Type: Spontaneous
  Country: US (occurrence: US)
  Receive Date: 20220617
  Receipt Date: 20230614
  Transmission Date: 20230721
  Serious: No
  Sender: FDA-Public Use
  Company Number: US-PFIZER INC-202200846404

PATIENT
  Age: 53 Year
  Sex: Male

DRUGS (2)
  1. INLYTA [Suspect]
     Active Substance: AXITINIB
     Dosage: 5 MG, 2X/DAY (APPROXIMATELY 12 HOURS APART)
     Dates: start: 20220606
  2. INLYTA [Suspect]
     Active Substance: AXITINIB
     Dosage: 5 MG, DAILY (FOR 28 DAYS)

REACTIONS (7)
  - Hypotension [Unknown]
  - Neoplasm progression [Unknown]
  - Weight abnormal [Recovered/Resolved]
  - Appetite disorder [Recovered/Resolved]
  - Rash [Unknown]
  - Fatigue [Unknown]
  - Male sexual dysfunction [Unknown]

NARRATIVE: CASE EVENT DATE: 20220601
